FAERS Safety Report 4489210-5 (Version None)
Quarter: 2004Q4

REPORT INFORMATION
  Report Type: 
  Country: None (occurrence: None)
  Receive Date: 20041029
  Receipt Date: 20041018
  Transmission Date: 20050328
  Serious: Yes (Hospitalization)
  Sender: FDA-Public Use
  Company Number: FR-JNJFOC-20041005671

PATIENT
  Sex: Male

DRUGS (5)
  1. RISPERDAL [Suspect]
     Route: 049
  2. RISPERDAL [Suspect]
     Route: 049
  3. DEROXAT [Concomitant]
  4. DEROXAT [Concomitant]
  5. TERCIAN [Concomitant]
     Route: 065

REACTIONS (2)
  - LEUKOPENIA [None]
  - NEUTROPENIA [None]
